FAERS Safety Report 15486314 (Version 9)
Quarter: 2019Q2

REPORT INFORMATION
  Report Type: Report from Study
  Country: US (occurrence: US)
  Receive Date: 20181011
  Receipt Date: 20190418
  Transmission Date: 20190711
  Serious: Yes (Life-Threatening, Hospitalization)
  Sender: FDA-Public Use
  Company Number: US-ROCHE-2140033

PATIENT
  Age: 58 Year
  Sex: Female
  Weight: 64.8 kg

DRUGS (135)
  1. METHYLPREDNISOLONE. [Concomitant]
     Active Substance: METHYLPREDNISOLONE
     Dosage: SUBSEQUENT DOSE RECEIVED ON: 20/NOV/2012, 03/MAY/2013, 10/APR/2014, 01/OCT/2014, 18/MAR/2015, 13/AUG
     Route: 065
     Dates: start: 20121107
  2. BACLOFEN. [Concomitant]
     Active Substance: BACLOFEN
     Route: 065
     Dates: start: 20060920, end: 201412
  3. FAMOTIDINE. [Concomitant]
     Active Substance: FAMOTIDINE
     Dosage: GASTRIC UPSET PROPHYLAXIS
     Route: 065
     Dates: start: 20180615, end: 20180622
  4. FELODIPINE. [Concomitant]
     Active Substance: FELODIPINE
     Indication: HYPERTENSION
     Route: 065
     Dates: start: 20100628
  5. CALCIUM GLUCONATE. [Concomitant]
     Active Substance: CALCIUM GLUCONATE
     Route: 065
     Dates: start: 20180524, end: 20180613
  6. MAGNESIUM SULFATE. [Concomitant]
     Active Substance: MAGNESIUM SULFATE
     Route: 065
     Dates: start: 20180530, end: 20180613
  7. MIDAZOLAM [Concomitant]
     Active Substance: MIDAZOLAM HYDROCHLORIDE
     Route: 065
     Dates: start: 20180618, end: 20180618
  8. OXYCODONE IR [Concomitant]
     Active Substance: OXYCODONE
     Indication: PAIN
     Route: 065
     Dates: start: 20180524, end: 20180614
  9. OXYCODONE IR [Concomitant]
     Active Substance: OXYCODONE
     Route: 065
     Dates: start: 20180529, end: 20180531
  10. PROPOFOL. [Concomitant]
     Active Substance: PROPOFOL
     Indication: SEDATIVE THERAPY
     Dosage: 30 MG, 50 MG
     Route: 065
     Dates: start: 20180528, end: 20180528
  11. SODIUM CHLORIDE. [Concomitant]
     Active Substance: SODIUM CHLORIDE
     Route: 065
     Dates: start: 20180613, end: 20180613
  12. DEXTROSE. [Concomitant]
     Active Substance: DEXTROSE
     Route: 065
     Dates: start: 20180615, end: 20180703
  13. AMLODIPINE [Concomitant]
     Active Substance: AMLODIPINE BESYLATE
     Indication: HYPERTENSION
     Route: 065
     Dates: start: 20180616, end: 20180703
  14. MORPHINE SULFATE. [Concomitant]
     Active Substance: MORPHINE SULFATE
     Route: 065
     Dates: start: 20180628, end: 20180703
  15. LACTATED RINGERS SOLUTION [Concomitant]
     Active Substance: CALCIUM CHLORIDE\POTASSIUM CHLORIDE\SODIUM CHLORIDE\SODIUM LACTATE
     Dosage: BLADDER STONES
     Route: 065
     Dates: start: 20140623, end: 20140623
  16. LACTATED RINGERS SOLUTION [Concomitant]
     Active Substance: CALCIUM CHLORIDE\POTASSIUM CHLORIDE\SODIUM CHLORIDE\SODIUM LACTATE
     Dosage: FOR PREOPERATIVE DEBRIDEMENT
     Route: 065
     Dates: start: 20180614, end: 20180614
  17. LACTATED RINGERS SOLUTION [Concomitant]
     Active Substance: CALCIUM CHLORIDE\POTASSIUM CHLORIDE\SODIUM CHLORIDE\SODIUM LACTATE
     Dosage: FOR LEFT BREAST ABSCESS
     Route: 065
     Dates: start: 20180617, end: 20180622
  18. FENTANYL CITRATE. [Concomitant]
     Active Substance: FENTANYL CITRATE
     Route: 065
     Dates: start: 20151214, end: 20151214
  19. GLUCOSE [Concomitant]
     Active Substance: DEXTROSE
     Route: 065
     Dates: start: 20180615, end: 20180703
  20. CEFAZOLIN [Concomitant]
     Active Substance: CEFAZOLIN
     Dosage: LEFT BREAST ABSCESS
     Route: 065
     Dates: start: 20180614, end: 20180614
  21. OCRELIZUMAB. [Suspect]
     Active Substance: OCRELIZUMAB
     Indication: PRIMARY PROGRESSIVE MULTIPLE SCLEROSIS
     Dosage: TWO IV INFUSIONS OF OCRELIZUMAB 300 MG SEPARATED BY 14 DAYS FOR CYCLE 1 AND SINGLE IV INFUSION OF OC
     Route: 042
     Dates: start: 20160211
  22. METHYLPREDNISOLONE. [Concomitant]
     Active Substance: METHYLPREDNISOLONE
     Dosage: SUBSEQUENT DOSE RECEIVED ON: 20/NOV/2012, 03/MAY/2013, 10/APR/2014, 01/OCT/2014, 18/MAR/2015, 13/AUG
     Route: 065
     Dates: start: 20121107
  23. ACETAMINOPHEN. [Concomitant]
     Active Substance: ACETAMINOPHEN
     Route: 065
     Dates: start: 20180523, end: 20180526
  24. ALBUMIN HUMAN [Concomitant]
     Active Substance: ALBUMIN HUMAN
     Indication: OEDEMA
     Dosage: EDEMA PROPHYLAXIS
     Route: 065
     Dates: start: 20180605, end: 20180605
  25. AMLOPINE [Concomitant]
     Active Substance: AMLODIPINE BESYLATE
     Indication: HYPERTENSION
     Route: 065
     Dates: start: 20180602, end: 20180602
  26. CALCIUM CARBONATE. [Concomitant]
     Active Substance: CALCIUM CARBONATE
     Route: 065
     Dates: start: 20180525, end: 20180613
  27. CHLORHEXIDINE [Concomitant]
     Active Substance: CHLORHEXIDINE
     Route: 065
     Dates: start: 20180610, end: 20180610
  28. FENTANYL. [Concomitant]
     Active Substance: FENTANYL
     Indication: SEDATIVE THERAPY
     Route: 065
     Dates: start: 20180528, end: 20180606
  29. MIDAZOLAM [Concomitant]
     Active Substance: MIDAZOLAM HYDROCHLORIDE
     Indication: BREAST ABSCESS
     Route: 065
     Dates: start: 20180529, end: 20180529
  30. MORPHINE [Concomitant]
     Active Substance: MORPHINE
     Route: 065
     Dates: start: 20180525, end: 20180528
  31. NORMODYNE [Concomitant]
     Active Substance: LABETALOL HYDROCHLORIDE
     Indication: HYPOTENSION
     Route: 065
     Dates: start: 20180526, end: 20180605
  32. SODIUM CHLORIDE. [Concomitant]
     Active Substance: SODIUM CHLORIDE
     Route: 065
     Dates: start: 20180526, end: 20180527
  33. BUSPIRONE [Concomitant]
     Active Substance: BUSPIRONE HYDROCHLORIDE
     Indication: DEPRESSION
     Route: 065
     Dates: start: 20180526, end: 20180613
  34. DEXTROSE. [Concomitant]
     Active Substance: DEXTROSE
     Route: 065
     Dates: start: 20180615, end: 20180615
  35. NORCO [Concomitant]
     Active Substance: ACETAMINOPHEN\HYDROCODONE BITARTRATE
     Route: 065
     Dates: start: 20180617, end: 20180617
  36. VANCOMYCIN [Concomitant]
     Active Substance: VANCOMYCIN
     Indication: BREAST ABSCESS
     Route: 065
     Dates: start: 20180615, end: 20180615
  37. BACLOFEN. [Concomitant]
     Active Substance: BACLOFEN
     Indication: MUSCLE SPASTICITY
     Route: 065
     Dates: start: 201501
  38. FAMOTIDINE. [Concomitant]
     Active Substance: FAMOTIDINE
     Indication: INVASIVE DUCTAL BREAST CARCINOMA
     Route: 065
     Dates: start: 20171010, end: 20171121
  39. FAMOTIDINE. [Concomitant]
     Active Substance: FAMOTIDINE
     Route: 065
     Dates: start: 20151214, end: 20151214
  40. FELODIPINE. [Concomitant]
     Active Substance: FELODIPINE
     Route: 065
     Dates: start: 20180523, end: 20180613
  41. BENADRYL [Concomitant]
     Active Substance: DIPHENHYDRAMINE HYDROCHLORIDE
     Indication: DERMATITIS CONTACT
     Route: 065
     Dates: start: 20150725, end: 20150801
  42. AMLOPINE [Concomitant]
     Active Substance: AMLODIPINE BESYLATE
     Route: 065
     Dates: start: 20180603, end: 20180611
  43. ENOXAPARIN [Concomitant]
     Active Substance: ENOXAPARIN
     Dosage: ACUTE DEEP VEIN THROMBOSIS PROPHYLAXIS
     Route: 065
     Dates: start: 20180523, end: 20180613
  44. ONDANSETRON [Concomitant]
     Active Substance: ONDANSETRON
     Route: 065
     Dates: start: 20180624, end: 20180703
  45. DEXTROSE. [Concomitant]
     Active Substance: DEXTROSE
     Route: 065
     Dates: start: 20180601, end: 20180601
  46. LIDOCAINE. [Concomitant]
     Active Substance: LIDOCAINE
     Route: 065
     Dates: start: 20180608, end: 20180608
  47. VANCOMYCIN [Concomitant]
     Active Substance: VANCOMYCIN
     Route: 065
     Dates: start: 20180616, end: 20180616
  48. VANCOMYCIN [Concomitant]
     Active Substance: VANCOMYCIN
     Route: 065
     Dates: start: 20180620, end: 20180629
  49. FOLEY CATHETER [Concomitant]
     Indication: NEUROGENIC BLADDER
     Route: 065
     Dates: start: 20180614, end: 20180703
  50. HYDROMORPHONE [Concomitant]
     Active Substance: HYDROMORPHONE
     Indication: WRIST FRACTURE
     Route: 065
     Dates: start: 20130920, end: 20130920
  51. HYDROMORPHONE [Concomitant]
     Active Substance: HYDROMORPHONE
     Indication: PAIN
     Route: 065
     Dates: start: 20180621, end: 20180621
  52. ACETAMINOPHEN. [Concomitant]
     Active Substance: ACETAMINOPHEN
     Route: 065
     Dates: start: 20180528, end: 20180529
  53. CHLORHEXIDINE [Concomitant]
     Active Substance: CHLORHEXIDINE
     Indication: ENDOTRACHEAL INTUBATION
     Route: 065
     Dates: start: 20180530, end: 20180614
  54. FAMOTIDINE. [Concomitant]
     Active Substance: FAMOTIDINE
     Dosage: PRE OPERATIVE DEBRIDEMENT
     Route: 065
     Dates: start: 20180626, end: 20180626
  55. FUROSEMIDE. [Concomitant]
     Active Substance: FUROSEMIDE
     Route: 065
     Dates: start: 20180527, end: 20180605
  56. NORMODYNE [Concomitant]
     Active Substance: LABETALOL HYDROCHLORIDE
     Indication: URINARY TRACT INFECTION
     Route: 065
     Dates: start: 20180610, end: 20180614
  57. METOPROLOL. [Concomitant]
     Active Substance: METOPROLOL
     Indication: HYPERTENSION
     Route: 065
     Dates: start: 20180529, end: 20180610
  58. METOPROLOL TARTRATE. [Concomitant]
     Active Substance: METOPROLOL TARTRATE
     Route: 065
     Dates: start: 20180616, end: 20180703
  59. MORPHINE [Concomitant]
     Active Substance: MORPHINE
     Indication: PAIN
     Route: 065
     Dates: start: 20180523, end: 20180523
  60. VANCOMYCIN [Concomitant]
     Active Substance: VANCOMYCIN
     Route: 065
     Dates: start: 20180616, end: 20180617
  61. POLYETHYLENE GLYCOL [Concomitant]
     Active Substance: POLYETHYLENE GLYCOLS
     Indication: CONSTIPATION
     Route: 065
     Dates: start: 20180622, end: 20180703
  62. FENTANYL CITRATE. [Concomitant]
     Active Substance: FENTANYL CITRATE
     Dosage: ABSCESS DEBRIDEMENT
     Route: 065
     Dates: start: 20180614, end: 20180626
  63. BISACODYL. [Concomitant]
     Active Substance: BISACODYL
     Indication: CONSTIPATION
     Route: 065
     Dates: start: 20180623, end: 20180703
  64. NORTRIPTYLINE [Concomitant]
     Active Substance: NORTRIPTYLINE
     Indication: DEPRESSION
     Route: 065
     Dates: start: 20110815
  65. ACETAMINOPHEN. [Concomitant]
     Active Substance: ACETAMINOPHEN
     Indication: PYREXIA
     Route: 065
     Dates: start: 20180523, end: 20180523
  66. AMIODARONE [Concomitant]
     Active Substance: AMIODARONE
     Route: 065
     Dates: start: 20180530, end: 20180531
  67. ENOXAPARIN [Concomitant]
     Active Substance: ENOXAPARIN
     Dosage: DEEP VEIN THROMBOSIS PROPHYLAXIS
     Route: 065
     Dates: start: 20180615, end: 20180616
  68. SODIUM CHLORIDE. [Concomitant]
     Active Substance: SODIUM CHLORIDE
     Route: 065
     Dates: start: 20180523, end: 20180523
  69. SODIUM CHLORIDE. [Concomitant]
     Active Substance: SODIUM CHLORIDE
     Route: 065
     Dates: start: 20180524, end: 20180524
  70. SODIUM CHLORIDE. [Concomitant]
     Active Substance: SODIUM CHLORIDE
     Route: 065
     Dates: start: 20180614, end: 20180614
  71. SODIUM PHOSPHATE [Concomitant]
     Active Substance: SODIUM PHOSPHATE
     Dosage: DOSE: 15 OTHER, UNKNOWN, 30 OTHER, UNKNOWN AND 45 OTHER, UNKNOWN
     Route: 065
     Dates: start: 20180613, end: 20180613
  72. METOCLOPRAMIDE. [Concomitant]
     Active Substance: METOCLOPRAMIDE
     Route: 065
     Dates: start: 20180626, end: 20180626
  73. LACTATED RINGERS SOLUTION [Concomitant]
     Active Substance: CALCIUM CHLORIDE\POTASSIUM CHLORIDE\SODIUM CHLORIDE\SODIUM LACTATE
     Indication: BREAST ABSCESS
     Route: 065
     Dates: start: 20151214, end: 20151214
  74. CEFAZOLIN [Concomitant]
     Active Substance: CEFAZOLIN
     Indication: BREAST ABSCESS
     Dosage: LATERAL MENISCAL TEAR
     Route: 065
     Dates: start: 20151214, end: 20151214
  75. CEFEPIME [Concomitant]
     Active Substance: CEFEPIME HYDROCHLORIDE
     Indication: BREAST ABSCESS
     Route: 065
     Dates: start: 20180621, end: 20180627
  76. ACETAMINOPHEN. [Concomitant]
     Active Substance: ACETAMINOPHEN
     Route: 065
     Dates: start: 20180625, end: 20180627
  77. ACETAMINOPHEN. [Concomitant]
     Active Substance: ACETAMINOPHEN
     Route: 065
     Dates: start: 20180526, end: 20180528
  78. CEFTAROLINE [Concomitant]
     Active Substance: CEFTAROLINE
     Indication: PNEUMONIA
     Route: 065
     Dates: start: 20180608, end: 20180609
  79. FAMOTIDINE. [Concomitant]
     Active Substance: FAMOTIDINE
     Route: 065
     Dates: start: 20180529, end: 20180614
  80. FENTANYL. [Concomitant]
     Active Substance: FENTANYL
     Indication: PAIN MANAGEMENT
     Route: 065
     Dates: start: 20180528, end: 20180602
  81. HYDRALAZINE [Concomitant]
     Active Substance: HYDRALAZINE HYDROCHLORIDE
     Route: 065
     Dates: start: 20180616, end: 20180703
  82. MIDAZOLAM [Concomitant]
     Active Substance: MIDAZOLAM HYDROCHLORIDE
     Indication: SEDATIVE THERAPY
     Dosage: 2 MG, 10 MG,
     Route: 065
     Dates: start: 20180528, end: 20180528
  83. NAPROXEN. [Concomitant]
     Active Substance: NAPROXEN
     Indication: PAIN
     Route: 065
     Dates: start: 20180610
  84. OMNIPAQUE [Concomitant]
     Active Substance: IOHEXOL
     Route: 065
     Dates: start: 20180531, end: 20180531
  85. PHENYLEPHRINE [Concomitant]
     Active Substance: PHENYLEPHRINE\PHENYLEPHRINE HYDROCHLORIDE
     Indication: HYPOTENSION
     Route: 065
     Dates: start: 20180529, end: 20180531
  86. PROPOFOL. [Concomitant]
     Active Substance: PROPOFOL
     Route: 065
     Dates: start: 20180613, end: 20180614
  87. SENNA/DOCUSATE SODIUM [Concomitant]
     Active Substance: DOCUSATE SODIUM\SENNOSIDES
     Indication: CONSTIPATION PROPHYLAXIS
     Route: 065
     Dates: start: 20180523, end: 20180612
  88. MORPHINE SULFATE. [Concomitant]
     Active Substance: MORPHINE SULFATE
     Route: 065
     Dates: start: 20180618, end: 20180624
  89. VANCOMYCIN [Concomitant]
     Active Substance: VANCOMYCIN
     Route: 065
     Dates: start: 20180618, end: 20180620
  90. HEPARIN [Concomitant]
     Active Substance: HEPARIN SODIUM
     Indication: DEEP VEIN THROMBOSIS
     Dosage: 15000UNIT
     Route: 065
     Dates: start: 20180614, end: 20180615
  91. GABAPENTIN. [Concomitant]
     Active Substance: GABAPENTIN
     Route: 065
     Dates: start: 20061208
  92. BENADRYL [Concomitant]
     Active Substance: DIPHENHYDRAMINE HYDROCHLORIDE
     Dosage: SUBSEQUENT DOSE RECEIVED ON: 20/NOV/2012, 03/MAY/2013, 10/APR/2014, 01/OCT/2014, 18/MAR/2015, 13/AUG
     Route: 065
     Dates: start: 20121107
  93. ACETAMINOPHEN. [Concomitant]
     Active Substance: ACETAMINOPHEN
     Route: 065
     Dates: start: 20151214, end: 20151214
  94. ACETAMINOPHEN. [Concomitant]
     Active Substance: ACETAMINOPHEN
     Route: 065
     Dates: start: 20180617, end: 20180617
  95. ALBUMIN HUMAN [Concomitant]
     Active Substance: ALBUMIN HUMAN
     Route: 065
     Dates: start: 20180530, end: 20180530
  96. AMIODARONE [Concomitant]
     Active Substance: AMIODARONE
     Indication: ATRIAL FIBRILLATION
     Route: 065
     Dates: start: 20180529, end: 20180529
  97. CISATRACURIUM. [Concomitant]
     Active Substance: CISATRACURIUM
     Indication: ENDOTRACHEAL INTUBATION
     Route: 065
     Dates: start: 20180529, end: 20180531
  98. DIGOXIN. [Concomitant]
     Active Substance: DIGOXIN
     Indication: ATRIAL FIBRILLATION
     Route: 065
     Dates: start: 20180529, end: 20180529
  99. ENOXAPARIN [Concomitant]
     Active Substance: ENOXAPARIN
     Dosage: DEEP VEIN THROMBOSIS PROPHYLAXIS
     Route: 065
     Dates: start: 20180617, end: 20180703
  100. FAMOTIDINE. [Concomitant]
     Active Substance: FAMOTIDINE
     Dosage: NAUSEA PROPHYLAXIS
     Route: 065
     Dates: start: 20180529, end: 20180614
  101. FUROSEMIDE. [Concomitant]
     Active Substance: FUROSEMIDE
     Route: 065
     Dates: start: 20180616, end: 20180616
  102. INSULIN ASPART [Concomitant]
     Active Substance: INSULIN ASPART
     Dosage: 2 UNITS
     Route: 065
     Dates: start: 20180601, end: 20180613
  103. LUBIPROSTONE [Concomitant]
     Active Substance: LUBIPROSTONE
     Indication: CONSTIPATION PROPHYLAXIS
     Route: 065
     Dates: start: 20180524, end: 20180605
  104. MEROPENEM. [Concomitant]
     Active Substance: MEROPENEM
     Indication: PNEUMONIA
     Route: 065
     Dates: start: 20180531, end: 20180609
  105. MEROPENEM. [Concomitant]
     Active Substance: MEROPENEM
     Route: 065
     Dates: start: 20180615, end: 20180615
  106. MEROPENEM. [Concomitant]
     Active Substance: MEROPENEM
     Route: 065
     Dates: start: 20180531, end: 20180609
  107. METOPROLOL TARTRATE. [Concomitant]
     Active Substance: METOPROLOL TARTRATE
     Indication: HYPERTENSION
     Route: 065
     Dates: start: 20180611, end: 20180614
  108. METOPROLOL TARTRATE. [Concomitant]
     Active Substance: METOPROLOL TARTRATE
     Route: 065
     Dates: start: 20180616, end: 20180703
  109. MIDAZOLAM [Concomitant]
     Active Substance: MIDAZOLAM HYDROCHLORIDE
     Route: 065
     Dates: start: 20180526, end: 20180526
  110. ONDANSETRON [Concomitant]
     Active Substance: ONDANSETRON
     Indication: NAUSEA
     Route: 065
     Dates: start: 20180523, end: 20180523
  111. SODIUM CHLORIDE. [Concomitant]
     Active Substance: SODIUM CHLORIDE
     Route: 065
     Dates: start: 20180526, end: 20180614
  112. SODIUM CHLORIDE. [Concomitant]
     Active Substance: SODIUM CHLORIDE
     Route: 065
     Dates: start: 20180613, end: 20180613
  113. NORCO [Concomitant]
     Active Substance: ACETAMINOPHEN\HYDROCODONE BITARTRATE
     Indication: WRIST FRACTURE
     Route: 065
     Dates: start: 20130920, end: 20130920
  114. NORCO [Concomitant]
     Active Substance: ACETAMINOPHEN\HYDROCODONE BITARTRATE
     Route: 065
     Dates: start: 20140623, end: 20140701
  115. PHENOL. [Concomitant]
     Active Substance: PHENOL
     Dosage: ORAL CARE: 5 SPRAYS
     Route: 048
     Dates: start: 20180614, end: 20180703
  116. METOCLOPRAMIDE. [Concomitant]
     Active Substance: METOCLOPRAMIDE
     Route: 065
     Dates: start: 20180619, end: 20180619
  117. LACTATED RINGERS SOLUTION [Concomitant]
     Active Substance: CALCIUM CHLORIDE\POTASSIUM CHLORIDE\SODIUM CHLORIDE\SODIUM LACTATE
     Dosage: ABSCESS DEBRIDEMENT
     Route: 065
     Dates: start: 20180625, end: 20180703
  118. BUPIVACAINE HCL [Concomitant]
     Active Substance: BUPIVACAINE HYDROCHLORIDE
     Route: 065
     Dates: start: 20180618, end: 20180618
  119. PLACEBO [Suspect]
     Active Substance: UNSPECIFIED INGREDIENT
     Indication: PRIMARY PROGRESSIVE MULTIPLE SCLEROSIS
     Dosage: SUBSEQUENT DOSE RECEIVED ON: 20/NOV/2012, 03/MAY/2013, 10/APR/2014, 01/OCT/2014, 18/MAR/2015, 13/AUG
     Route: 042
     Dates: start: 20121107, end: 20160210
  120. TYLENOL [Concomitant]
     Active Substance: ACETAMINOPHEN
     Dosage: SUBSEQUENT DOSE RECEIVED ON: 20/NOV/2012, 03/MAY/2013, 10/APR/2014, 01/OCT/2014, 18/MAR/2015, 13/AUG
     Route: 065
     Dates: start: 20121107
  121. BUPROPION. [Concomitant]
     Active Substance: BUPROPION
     Indication: DEPRESSION
     Route: 065
     Dates: start: 200604
  122. DEXAMETHASONE SODIUM PHOSPHATE. [Concomitant]
     Active Substance: DEXAMETHASONE SODIUM PHOSPHATE
     Indication: INVASIVE DUCTAL BREAST CARCINOMA
     Route: 065
     Dates: start: 20170815, end: 20171121
  123. FAMOTIDINE. [Concomitant]
     Active Substance: FAMOTIDINE
     Dosage: PREOPERATIVE DEBRIDEMENT
     Route: 065
     Dates: start: 20180617, end: 20180617
  124. FENTANYL. [Concomitant]
     Active Substance: FENTANYL
     Route: 065
     Dates: start: 20180602, end: 20180606
  125. FUROSEMIDE. [Concomitant]
     Active Substance: FUROSEMIDE
     Route: 065
     Dates: start: 20180611, end: 20180611
  126. HYDRALAZINE [Concomitant]
     Active Substance: HYDRALAZINE HYDROCHLORIDE
     Indication: HYPERTENSION
     Route: 065
     Dates: start: 20180602, end: 20180614
  127. NOREPINEPHRINE. [Concomitant]
     Active Substance: NOREPINEPHRINE
     Indication: HYPOTENSION
     Route: 065
     Dates: start: 20180526, end: 20180530
  128. SODIUM CHLORIDE. [Concomitant]
     Active Substance: SODIUM CHLORIDE
     Route: 065
     Dates: start: 20180530, end: 20180530
  129. SODIUM CHLORIDE. [Concomitant]
     Active Substance: SODIUM CHLORIDE
     Dosage: 250 ML
     Route: 065
     Dates: start: 20180613, end: 20180613
  130. SODIUM CHLORIDE. [Concomitant]
     Active Substance: SODIUM CHLORIDE
     Route: 065
     Dates: start: 20180529, end: 20180529
  131. VASOPRESSIN. [Concomitant]
     Active Substance: VASOPRESSIN
     Indication: SEPTIC SHOCK
     Route: 065
     Dates: start: 20180529, end: 20180529
  132. DEXTROSE. [Concomitant]
     Active Substance: DEXTROSE
     Route: 065
     Dates: start: 20180615, end: 20180618
  133. GADOTERIDOL [Concomitant]
     Active Substance: GADOTERIDOL
     Route: 065
     Dates: start: 20180605, end: 20180605
  134. MORPHINE SULFATE. [Concomitant]
     Active Substance: MORPHINE SULFATE
     Indication: BREAST ABSCESS
     Route: 065
     Dates: start: 20151214, end: 20151214
  135. DOXYCYCLINE MONOHYDRATE [Concomitant]
     Active Substance: DOXYCYCLINE
     Indication: BREAST ABSCESS
     Route: 065
     Dates: start: 20180629, end: 20180705

REACTIONS (3)
  - Candida sepsis [Recovered/Resolved]
  - Acute respiratory failure [Recovered/Resolved]
  - Hypoxia [Recovered/Resolved]

NARRATIVE: CASE EVENT DATE: 20180523
